FAERS Safety Report 10348506 (Version 1)
Quarter: 2014Q3

REPORT INFORMATION
  Report Type: Spontaneous
  Country: CN (occurrence: None)
  Receive Date: 20140725
  Receipt Date: 20140725
  Transmission Date: 20150326
  Serious: Yes (Hospitalization, Other)
  Sender: FDA-Public Use
  Company Number: VAL_03233_2014

PATIENT
  Age: 32 Year
  Sex: Female

DRUGS (3)
  1. BROMOCRIPTINE\BROMOCRIPTINE MESYLATE [Suspect]
     Active Substance: BROMOCRIPTINE\BROMOCRIPTINE MESYLATE
     Indication: PRODUCT USED FOR UNKNOWN INDICATION
     Route: 048
  2. MIFEPRISTONE [Suspect]
     Active Substance: MIFEPRISTONE
     Indication: PRODUCT USED FOR UNKNOWN INDICATION
     Dosage: DF
  3. MISOPROSTOL. [Suspect]
     Active Substance: MISOPROSTOL
     Indication: PRODUCT USED FOR UNKNOWN INDICATION
     Dosage: DF

REACTIONS (3)
  - Maternal exposure during pregnancy [None]
  - Abortion induced [None]
  - Cytomegalovirus infection [None]
